FAERS Safety Report 5723178-6 (Version None)
Quarter: 2008Q2

REPORT INFORMATION
  Report Type: 
  Country: None (occurrence: None)
  Receive Date: 20080430
  Receipt Date: 20080421
  Transmission Date: 20081010
  Serious: Yes (Hospitalization)
  Sender: FDA-Public Use
  Company Number: FR-ELI_LILLY_AND_COMPANY-FR200804005409

PATIENT
  Age: 76 Year
  Sex: Female

DRUGS (3)
  1. FORTEO [Suspect]
     Indication: OSTEOPOROSIS
     Dosage: 20 UG, DAILY (1/D)
     Route: 058
     Dates: start: 20070301
  2. PREVISCAN [Concomitant]
  3. CORTISONE [Concomitant]

REACTIONS (12)
  - ARTHRALGIA [None]
  - ASTHENIA [None]
  - ATRIAL FIBRILLATION [None]
  - BLOOD ALBUMIN INCREASED [None]
  - CHILLS [None]
  - EPISTAXIS [None]
  - FALL [None]
  - INTERNATIONAL NORMALISED RATIO DECREASED [None]
  - JOINT SPRAIN [None]
  - MALAISE [None]
  - PAIN [None]
  - SCIATICA [None]
